FAERS Safety Report 9274992 (Version 1)
Quarter: 2013Q2

REPORT INFORMATION
  Report Type: Spontaneous
  Country: ES (occurrence: ES)
  Receive Date: 20130507
  Receipt Date: 20130507
  Transmission Date: 20140414
  Serious: Yes (Other)
  Sender: FDA-Public Use
  Company Number: ES-ELI_LILLY_AND_COMPANY-ES201304008329

PATIENT
  Age: 63 Year
  Sex: Male
  Weight: 67 kg

DRUGS (3)
  1. FORSTEO [Suspect]
     Indication: OSTEOPOROSIS
     Dosage: 20 UG, QD
     Route: 058
     Dates: start: 20110213, end: 201105
  2. SINTROM [Concomitant]
     Dosage: UNK, QD
     Route: 048
  3. DIGOXINA [Concomitant]
     Dosage: UNK
     Route: 048

REACTIONS (2)
  - Mitral valve incompetence [Recovered/Resolved]
  - Fluid retention [Recovered/Resolved]
